FAERS Safety Report 5291049-8 (Version None)
Quarter: 2007Q2

REPORT INFORMATION
  Report Type: 
  Country: None (occurrence: None)
  Receive Date: 20070409
  Receipt Date: 20070329
  Transmission Date: 20071010
  Serious: Yes (Other)
  Sender: FDA-Public Use
  Company Number: GB-AVENTIS-200711709EU

PATIENT

DRUGS (1)
  1. RILUTEK [Suspect]
     Indication: MOTOR NEURONE DISEASE

REACTIONS (1)
  - DYSPHAGIA [None]
